FAERS Safety Report 8896153 (Version 2)
Quarter: 2014Q1

REPORT INFORMATION
  Report Type: Spontaneous
  Country: IT (occurrence: IT)
  Receive Date: 20121108
  Receipt Date: 20140123
  Transmission Date: 20141002
  Serious: Yes (Hospitalization)
  Sender: FDA-Public Use
  Company Number: IT-MYLANLABS-2012S1022359

PATIENT
  Age: 82 Year
  Sex: Female

DRUGS (15)
  1. TOTALIP [Concomitant]
     Indication: PRODUCT USED FOR UNKNOWN INDICATION
     Route: 048
  2. ZYLORIC [Concomitant]
     Indication: PRODUCT USED FOR UNKNOWN INDICATION
     Route: 048
     Dates: end: 20120821
  3. ZANEDIP [Concomitant]
     Indication: PRODUCT USED FOR UNKNOWN INDICATION
     Route: 048
  4. LASIX [Concomitant]
     Indication: PRODUCT USED FOR UNKNOWN INDICATION
     Route: 048
  5. FERRO-GRAD [Concomitant]
     Indication: ANAEMIA
     Dates: end: 20120821
  6. ENALAPRIL [Concomitant]
     Indication: PRODUCT USED FOR UNKNOWN INDICATION
     Route: 048
  7. OMEPRAZOLE [Concomitant]
     Indication: PRODUCT USED FOR UNKNOWN INDICATION
     Route: 048
  8. LEVOFLOXACIN [Suspect]
     Indication: HYPERPYREXIA
     Route: 048
     Dates: start: 20120801, end: 20120810
  9. CEFTRIAXONE [Suspect]
     Indication: HYPERPYREXIA
     Route: 030
     Dates: start: 20120811, end: 20120823
  10. MICARDIS PLUS [Concomitant]
     Indication: CARDIAC FAILURE
     Route: 048
     Dates: start: 20080214, end: 20121012
  11. CARDIOASPIRIN [Concomitant]
     Indication: CARDIAC FAILURE
     Route: 048
     Dates: start: 20080214, end: 20121012
  12. KEPPRA [Concomitant]
     Indication: PRODUCT USED FOR UNKNOWN INDICATION
     Route: 048
  13. SPIRIVA [Concomitant]
     Indication: PRODUCT USED FOR UNKNOWN INDICATION
     Route: 055
  14. SERETIDE [Concomitant]
     Indication: PRODUCT USED FOR UNKNOWN INDICATION
     Route: 055
  15. CATAPRESAN [Concomitant]
     Indication: PRODUCT USED FOR UNKNOWN INDICATION
     Route: 062

REACTIONS (2)
  - Acute generalised exanthematous pustulosis [Recovering/Resolving]
  - Renal impairment [Recovered/Resolved]
